FAERS Safety Report 6924991-X (Version None)
Quarter: 2010Q3

REPORT INFORMATION
  Report Type: 
  Country: None (occurrence: None)
  Receive Date: 20100816
  Receipt Date: 20100806
  Transmission Date: 20110219
  Serious: Yes (Hospitalization, Other)
  Sender: FDA-Public Use
  Company Number: FR-KINGPHARMUSA00001-K201000994

PATIENT
  Age: 96 Year
  Sex: Female

DRUGS (6)
  1. ALTACE [Suspect]
     Dosage: 1.25 MG, QD
     Route: 048
     Dates: start: 20090101, end: 20100404
  2. ATENOLOL [Concomitant]
     Dosage: UNK
     Dates: start: 20100201
  3. AMLOR [Concomitant]
     Dosage: UNK
     Dates: start: 20090101
  4. ZOLOFT [Concomitant]
     Dosage: UNK
     Dates: start: 20100201
  5. COUMADIN [Concomitant]
     Dosage: UNK
     Dates: start: 20100101
  6. NORFLOXACIN [Concomitant]
     Indication: URINARY TRACT INFECTION
     Dosage: UNK
     Dates: start: 20100326

REACTIONS (12)
  - ANAEMIA [None]
  - BLOOD CREATININE INCREASED [None]
  - BLOOD UREA INCREASED [None]
  - HAEMATOMA [None]
  - INTERNATIONAL NORMALISED RATIO INCREASED [None]
  - OEDEMA PERIPHERAL [None]
  - OVERDOSE [None]
  - PULMONARY EMBOLISM [None]
  - RENAL FAILURE ACUTE [None]
  - SKIN DISCOLOURATION [None]
  - URINARY TRACT INFECTION [None]
  - VITAMIN K DECREASED [None]
